FAERS Safety Report 9365142 (Version 1)
Quarter: 2013Q2

REPORT INFORMATION
  Report Type: Spontaneous
  Country: GB (occurrence: GB)
  Receive Date: 20130624
  Receipt Date: 20130624
  Transmission Date: 20140414
  Serious: Yes (Other)
  Sender: FDA-Public Use
  Company Number: PHHY2013GB061747

PATIENT
  Age: 3 Year
  Sex: Male
  Weight: 16 kg

DRUGS (3)
  1. PHENOXYMETHYLPENICILLIN [Suspect]
     Indication: SCARLET FEVER
     Dosage: 5 ML, QID
     Route: 048
     Dates: start: 20130603, end: 20130604
  2. PARACETAMOL [Concomitant]
  3. PIRITON [Concomitant]

REACTIONS (2)
  - Psychomotor hyperactivity [Not Recovered/Not Resolved]
  - Reaction to colouring [Unknown]
